FAERS Safety Report 8252009-8 (Version None)
Quarter: 2012Q2

REPORT INFORMATION
  Report Type: 
  Country: None (occurrence: None)
  Receive Date: 20120402
  Receipt Date: 20120320
  Transmission Date: 20120825
  Serious: Yes (Congenital Anomaly)
  Sender: FDA-Public Use
  Company Number: DK-FRI-1000025965

PATIENT
  Sex: Male
  Weight: 4.6 kg

DRUGS (2)
  1. ESCITALOPRAM [Suspect]
     Dosage: 30 MG DAILY IN 3RD TRIMESTER
     Route: 064
  2. ESCITALOPRAM [Suspect]
     Dosage: 20 MG DAILY IN FIRST AND SECOND TRIMESTER
     Route: 064

REACTIONS (3)
  - MOTOR DEVELOPMENTAL DELAY [None]
  - FOETAL EXPOSURE DURING PREGNANCY [None]
  - SPEECH DISORDER DEVELOPMENTAL [None]
